FAERS Safety Report 5758063-7 (Version None)
Quarter: 2008Q2

REPORT INFORMATION
  Report Type: 
  Country: None (occurrence: None)
  Receive Date: 20080602
  Receipt Date: 20080602
  Transmission Date: 20081010
  Serious: Yes (Death)
  Sender: FDA-Public Use
  Company Number: None

PATIENT
  Age: 19 Year
  Sex: Male
  Weight: 81.6475 kg

DRUGS (2)
  1. METHADONE HCL [Suspect]
  2. XANAX [Suspect]

REACTIONS (1)
  - ACCIDENTAL OVERDOSE [None]
